FAERS Safety Report 11031838 (Version 2)
Quarter: 2015Q2

REPORT INFORMATION
  Report Type: Spontaneous
  Country: DE (occurrence: DE)
  Receive Date: 20150415
  Receipt Date: 20150629
  Transmission Date: 20150821
  Serious: Yes (Disabling)
  Sender: FDA-Public Use
  Company Number: DE-SA-2015SA029806

PATIENT
  Sex: Female
  Weight: 47 kg

DRUGS (1)
  1. AUBAGIO [Suspect]
     Active Substance: TERIFLUNOMIDE
     Indication: MULTIPLE SCLEROSIS
     Route: 048
     Dates: start: 201312

REACTIONS (6)
  - Osteitis [Unknown]
  - Gingivitis [Unknown]
  - Inappropriate schedule of drug administration [Unknown]
  - White blood cell count decreased [Unknown]
  - Pain in jaw [Recovered/Resolved]
  - Toothache [Recovered/Resolved with Sequelae]

NARRATIVE: CASE EVENT DATE: 201312
